FAERS Safety Report 6420058-8 (Version None)
Quarter: 2009Q4

REPORT INFORMATION
  Report Type: 
  Country: None (occurrence: None)
  Receive Date: 20091029
  Receipt Date: 20091023
  Transmission Date: 20100525
  Serious: Yes (Other)
  Sender: FDA-Public Use
  Company Number: FR-PFIZER INC-2009249076

PATIENT
  Age: 50 Year

DRUGS (1)
  1. SOLU-MEDROL [Suspect]
     Dosage: 120 MG, SINGLE
     Route: 042
     Dates: start: 20090701, end: 20090701

REACTIONS (3)
  - ANAPHYLACTIC SHOCK [None]
  - HYPERHIDROSIS [None]
  - MALAISE [None]
